FAERS Safety Report 10515947 (Version 1)
Quarter: 2014Q4

REPORT INFORMATION
  Report Type: Spontaneous
  Country: US (occurrence: US)
  Receive Date: 20141014
  Receipt Date: 20141014
  Transmission Date: 20150528
  Serious: No
  Sender: FDA-Public Use
  Company Number: US-PFIZER INC-2014280008

PATIENT
  Age: 74 Year
  Sex: Female
  Weight: 55.33 kg

DRUGS (8)
  1. IMITREX [Concomitant]
     Active Substance: SUMATRIPTAN\SUMATRIPTAN SUCCINATE
     Indication: MIGRAINE
     Dosage: UNK
  2. TYLENOL [Suspect]
     Active Substance: ACETAMINOPHEN
     Dosage: UNK
  3. CELEBREX [Suspect]
     Active Substance: CELECOXIB
     Indication: SKIN DISCOLOURATION
     Dosage: UNK
  4. CELEBREX [Suspect]
     Active Substance: CELECOXIB
     Indication: PERIPHERAL SWELLING
  5. CELEBREX [Suspect]
     Active Substance: CELECOXIB
     Indication: MUSCULOSKELETAL PAIN
  6. CELEBREX [Suspect]
     Active Substance: CELECOXIB
     Indication: RASH PRURITIC
  7. CELEBREX [Suspect]
     Active Substance: CELECOXIB
     Indication: MALAISE
  8. ALLOPURINOL. [Concomitant]
     Active Substance: ALLOPURINOL
     Indication: GOUT
     Dosage: UNK

REACTIONS (1)
  - Drug ineffective [Unknown]
